FAERS Safety Report 8267078-9 (Version None)
Quarter: 2012Q2

REPORT INFORMATION
  Report Type: 
  Country: None (occurrence: None)
  Receive Date: 20120409
  Receipt Date: 20120328
  Transmission Date: 20120825
  Serious: Yes (Hospitalization, Other)
  Sender: FDA-Public Use
  Company Number: US-ELI_LILLY_AND_COMPANY-US201203009198

PATIENT
  Sex: Male

DRUGS (16)
  1. PROGRAF [Concomitant]
     Dosage: UNK
     Dates: start: 20110101
  2. MYFORTIC [Concomitant]
     Dosage: UNK
     Dates: start: 20110101
  3. CALCIUM CARBONATE [Concomitant]
     Dosage: UNK
     Dates: start: 20110101
  4. ATACAND [Concomitant]
     Dosage: UNK
     Dates: start: 20110101
  5. COREG [Concomitant]
     Dosage: UNK
     Dates: start: 20110101
  6. FORTEO [Suspect]
     Indication: OSTEOPOROSIS
     Dosage: 20 UG, QD
     Route: 065
     Dates: start: 20120321, end: 20120325
  7. LEVOTHROID [Concomitant]
     Dosage: UNK
     Dates: start: 20110101
  8. DOCUSATE [Concomitant]
     Dosage: UNK
     Dates: start: 20110101
  9. PREDNISONE [Concomitant]
     Dosage: UNK
     Dates: start: 20110101
  10. IRON [Concomitant]
     Dosage: UNK
     Dates: start: 20110101
  11. SPIRONOLACTONE [Concomitant]
     Dosage: UNK
     Dates: start: 20110101
  12. VITAMIN D [Concomitant]
     Dosage: UNK
     Dates: start: 20110101
  13. ASPIRIN [Concomitant]
     Dosage: UNK
     Dates: start: 20110101
  14. LASIX [Concomitant]
     Dosage: UNK
     Dates: start: 20110101
  15. PRAVACHOL [Concomitant]
     Dosage: UNK
     Dates: start: 20110101
  16. HYDRALAZINE HCL [Concomitant]
     Dosage: UNK
     Dates: start: 20110101

REACTIONS (2)
  - GASTROINTESTINAL HAEMORRHAGE [None]
  - COLITIS [None]
